FAERS Safety Report 13006038 (Version 2)
Quarter: 2017Q4

REPORT INFORMATION
  Report Type: Spontaneous
  Country: US (occurrence: US)
  Receive Date: 20161207
  Receipt Date: 20171127
  Transmission Date: 20180320
  Serious: No
  Sender: FDA-Public Use
  Company Number: US-BAUSCH-BL-2016-019661

PATIENT
  Sex: Female

DRUGS (1)
  1. BENZAMYCIN [Suspect]
     Active Substance: BENZOYL PEROXIDE\ERYTHROMYCIN
     Indication: ACNE
     Dosage: APPLY ONCE DAILY
     Route: 061
     Dates: start: 20150513

REACTIONS (3)
  - No adverse event [Unknown]
  - Product physical consistency issue [Unknown]
  - Product storage error [Unknown]
